FAERS Safety Report 6262108-8 (Version None)
Quarter: 2009Q3

REPORT INFORMATION
  Report Type: 
  Country: None (occurrence: None)
  Receive Date: 20090709
  Receipt Date: 20090707
  Transmission Date: 20100115
  Serious: Yes (Death, Hospitalization)
  Sender: FDA-Public Use
  Company Number: BR-ASTRAZENECA-2009UW18769

PATIENT
  Age: 89 Year
  Sex: Female

DRUGS (2)
  1. SEROQUEL [Suspect]
     Route: 048
     Dates: start: 20060220
  2. ATIVAN [Concomitant]
     Dates: start: 20060220

REACTIONS (2)
  - HIP FRACTURE [None]
  - POST PROCEDURAL COMPLICATION [None]
